FAERS Safety Report 17337012 (Version 4)
Quarter: 2022Q2

REPORT INFORMATION
  Report Type: Spontaneous
  Country: US (occurrence: US)
  Receive Date: 20200128
  Receipt Date: 20220408
  Transmission Date: 20220720
  Serious: Yes (Other)
  Sender: FDA-Public Use
  Company Number: US-PFIZER INC-2020036817

PATIENT
  Age: 75 Year
  Sex: Female
  Weight: 102.04 kg

DRUGS (1)
  1. XELJANZ XR [Suspect]
     Active Substance: TOFACITINIB CITRATE
     Indication: Rheumatoid arthritis
     Dosage: 11 MG, 1X/DAY
     Dates: start: 2018

REACTIONS (6)
  - White blood cell count decreased [Unknown]
  - Vitamin B12 decreased [Recovered/Resolved]
  - Fatigue [Unknown]
  - Spinal stenosis [Unknown]
  - Hypoaesthesia [Unknown]
  - Arthropathy [Unknown]

NARRATIVE: CASE EVENT DATE: 20180101
